FAERS Safety Report 7862311-7 (Version None)
Quarter: 2011Q4

REPORT INFORMATION
  Report Type: 
  Country: None (occurrence: None)
  Receive Date: 20111026
  Receipt Date: 20111017
  Transmission Date: 20120403
  Serious: Yes (Death, Hospitalization)
  Sender: FDA-Public Use
  Company Number: WAES 1103USA00468

PATIENT
  Age: 32 Year
  Sex: Male

DRUGS (8)
  1. COTRIMAZOLE [Concomitant]
  2. ACETAMINOPHEN [Concomitant]
  3. RALTEGRAVIR POTASSIUM [Suspect]
     Indication: HIV INFECTION
     Dates: start: 20110111, end: 20110210
  4. CIPRO [Concomitant]
  5. DEXTROSE (+) ELECTROLYTES (UNSPECIFIED) [Concomitant]
  6. SODIUM CHLORIDE [Concomitant]
  7. LOPINAVIR/RITONAVIR [Suspect]
     Indication: HIV INFECTION
     Dates: start: 20110111, end: 20110210
  8. IBUPROFEN [Concomitant]

REACTIONS (21)
  - ULCER [None]
  - PULMONARY OEDEMA [None]
  - BRONCHOPULMONARY ASPERGILLOSIS [None]
  - SEPTIC SHOCK [None]
  - PLEURAL FIBROSIS [None]
  - RENAL TUBULAR NECROSIS [None]
  - PANCYTOPENIA [None]
  - ADRENAL CORTEX NECROSIS [None]
  - INFECTIOUS PERITONITIS [None]
  - HEPATITIS [None]
  - CHOLESTASIS [None]
  - LYMPHOID TISSUE HYPERPLASIA [None]
  - SPLEEN DISORDER [None]
  - DIARRHOEA [None]
  - RASH [None]
  - MYOCARDIAL FIBROSIS [None]
  - BRONCHOPNEUMONIA [None]
  - DEHYDRATION [None]
  - STOMATITIS [None]
  - SPLEEN CONGESTION [None]
  - CHOLECYSTITIS [None]
